FAERS Safety Report 9184214 (Version 1)
Quarter: 2013Q1

REPORT INFORMATION
  Report Type: Spontaneous
  Country: US (occurrence: US)
  Receive Date: 20130322
  Receipt Date: 20130322
  Transmission Date: 20140127
  Serious: Yes (Other)
  Sender: FDA-Public Use
  Company Number: US-BRISTOL-MYERS SQUIBB COMPANY-16465635

PATIENT
  Age: 70 Year
  Sex: Male

DRUGS (5)
  1. ERBITUX [Suspect]
     Indication: SQUAMOUS CELL CARCINOMA
     Dosage: NO OF TREATMENTS:02
  2. PENTOXIFYLLINE [Concomitant]
  3. VITAMIN E [Concomitant]
  4. OXYCODONE [Concomitant]
  5. DEXAMETHASONE [Concomitant]

REACTIONS (1)
  - Skin disorder [Unknown]
